FAERS Safety Report 26117044 (Version 1)
Quarter: 2025Q4

REPORT INFORMATION
  Report Type: Spontaneous
  Country: CN (occurrence: CN)
  Receive Date: 20251203
  Receipt Date: 20251203
  Transmission Date: 20260118
  Serious: Yes (Other)
  Sender: SANDOZ
  Company Number: CN-002147023-NVSC2025CN183807

PATIENT
  Age: 15 Year
  Sex: Male
  Weight: 61 kg

DRUGS (1)
  1. DEXAMETHASONE\TOBRAMYCIN [Suspect]
     Active Substance: DEXAMETHASONE\TOBRAMYCIN
     Indication: Conjunctivitis
     Dosage: 3 DROP, TID
     Route: 047
     Dates: start: 20250219, end: 20250312

REACTIONS (6)
  - Dizziness [Recovering/Resolving]
  - Eye pain [Recovering/Resolving]
  - Glaucoma [Unknown]
  - Intraocular pressure increased [Recovering/Resolving]
  - Dry eye [Unknown]
  - Eye swelling [Recovering/Resolving]

NARRATIVE: CASE EVENT DATE: 20250313
